FAERS Safety Report 10411819 (Version 2)
Quarter: 2014Q3

REPORT INFORMATION
  Report Type: Spontaneous
  Country: US (occurrence: US)
  Receive Date: 20140827
  Receipt Date: 20140909
  Transmission Date: 20150326
  Serious: Yes (Death, Other)
  Sender: FDA-Public Use
  Company Number: US-AMGEN-USASP2014064026

PATIENT
  Age: 81 Year
  Sex: Female
  Weight: 62.13 kg

DRUGS (10)
  1. PROLIA [Suspect]
     Active Substance: DENOSUMAB
     Indication: OSTEOPOROSIS POSTMENOPAUSAL
     Dosage: 60 MG, Q6MO
     Route: 058
     Dates: start: 20130912
  2. ARICEPT [Concomitant]
     Active Substance: DONEPEZIL HYDROCHLORIDE
     Dosage: 5 MG, QD
     Route: 048
     Dates: start: 20131209
  3. PROZAC [Concomitant]
     Active Substance: FLUOXETINE HYDROCHLORIDE
     Indication: ANXIETY
     Dosage: 20 UNK, QD
     Route: 048
     Dates: start: 20140218
  4. SYNTHROID [Concomitant]
     Active Substance: LEVOTHYROXINE SODIUM
     Dosage: 50 UNK, QD
     Route: 048
  5. MEMANTINE [Concomitant]
     Active Substance: MEMANTINE
     Dosage: 28 MG, QD
     Route: 048
     Dates: start: 20140324
  6. SENNA-S                            /00936101/ [Concomitant]
     Dosage: 5 MG, BID
     Route: 048
     Dates: start: 20140218
  7. LATANOPROST. [Concomitant]
     Active Substance: LATANOPROST
     Dosage: 7.5 ML, UNK
     Dates: start: 20140324
  8. FLUOXETINE HCL [Concomitant]
     Active Substance: FLUOXETINE HYDROCHLORIDE
     Dosage: 20 MG, QD
     Route: 048
     Dates: start: 20140218
  9. PEPCID [Concomitant]
     Active Substance: FAMOTIDINE
     Dosage: 20 MG, QD
     Route: 048
     Dates: start: 20140218
  10. NAMENDA [Concomitant]
     Active Substance: MEMANTINE HYDROCHLORIDE
     Indication: DEMENTIA
     Dosage: UNK UNK, QD
     Route: 048
     Dates: start: 20131010

REACTIONS (16)
  - Contusion [Unknown]
  - Haemoglobin abnormal [Unknown]
  - Fatigue [Unknown]
  - Oedema peripheral [Unknown]
  - Weight decreased [Unknown]
  - Fall [Unknown]
  - Leukaemia [Unknown]
  - Increased tendency to bruise [Unknown]
  - Pancytopenia [Recovered/Resolved]
  - Decreased appetite [Unknown]
  - Asthenia [Unknown]
  - Dyspnoea exertional [Unknown]
  - Cardio-respiratory arrest [Fatal]
  - Hypersomnia [Unknown]
  - Vitamin B12 deficiency [Unknown]
  - Memory impairment [Unknown]

NARRATIVE: CASE EVENT DATE: 20140325
